FAERS Safety Report 15478179 (Version 1)
Quarter: 2018Q4

REPORT INFORMATION
  Report Type: Report from Study
  Country: DE (occurrence: DE)
  Receive Date: 20181009
  Receipt Date: 20181009
  Transmission Date: 20190205
  Serious: Yes (Life-Threatening, Hospitalization, Other)
  Sender: FDA-Public Use
  Company Number: DE-TORRENT-00001983

PATIENT

DRUGS (2)
  1. QUETIAPIN [Suspect]
     Active Substance: QUETIAPINE
     Indication: PRODUCT USED FOR UNKNOWN INDICATION
     Dosage: 9 G
  2. ZOPICLONE [Suspect]
     Active Substance: ZOPICLONE
     Indication: PRODUCT USED FOR UNKNOWN INDICATION
     Dosage: UNKNOWN

REACTIONS (9)
  - Drug interaction [Unknown]
  - Somnolence [Unknown]
  - Pneumonia [Unknown]
  - Drug level increased [Unknown]
  - Suicide attempt [Unknown]
  - Delirium [Unknown]
  - Heart rate increased [Unknown]
  - Intentional overdose [Unknown]
  - Coma [Unknown]
